FAERS Safety Report 14569585 (Version 3)
Quarter: 2018Q1

REPORT INFORMATION
  Report Type: Spontaneous
  Country: JP (occurrence: JP)
  Receive Date: 20180224
  Receipt Date: 20180319
  Transmission Date: 20180509
  Serious: Yes (Other)
  Sender: FDA-Public Use
  Company Number: JP-009507513-1802JPN002555J

PATIENT
  Age: 52 Year
  Sex: Female

DRUGS (2)
  1. ASMANEX [Suspect]
     Active Substance: MOMETASONE FUROATE
     Indication: ASTHMA
     Dosage: 800 MICROGRAM, UNK
     Route: 055
  2. XOLAIR [Concomitant]
     Active Substance: OMALIZUMAB
     Indication: ASTHMA
     Dosage: UNK
     Route: 065

REACTIONS (3)
  - Cortisol decreased [Unknown]
  - Adrenal insufficiency [Unknown]
  - Malaise [Unknown]
